FAERS Safety Report 10237268 (Version 1)
Quarter: 2014Q2

REPORT INFORMATION
  Report Type: Spontaneous
  Country: US (occurrence: US)
  Receive Date: 20140613
  Receipt Date: 20140613
  Transmission Date: 20141212
  Serious: No
  Sender: FDA-Public Use
  Company Number: US-GILEAD-2014-0105051

PATIENT
  Sex: Female

DRUGS (2)
  1. LETAIRIS [Suspect]
     Indication: PRODUCT USED FOR UNKNOWN INDICATION
     Dosage: 5 MG, QD
     Route: 065
     Dates: start: 20130814
  2. ZPAC [Concomitant]

REACTIONS (6)
  - Malaise [Unknown]
  - Unevaluable event [Unknown]
  - Malaise [Unknown]
  - Unevaluable event [Unknown]
  - Insomnia [Unknown]
  - Sinus disorder [Unknown]
